FAERS Safety Report 7177058-2 (Version None)
Quarter: 2010Q4

REPORT INFORMATION
  Report Type: 
  Country: None (occurrence: None)
  Receive Date: 20101216
  Receipt Date: 20101216
  Transmission Date: 20110411
  Serious: Yes (Other)
  Sender: FDA-Public Use
  Company Number: None

PATIENT
  Age: 53 Year
  Sex: Female
  Weight: 75.2971 kg

DRUGS (3)
  1. CYMBALTA [Suspect]
     Indication: CHRONIC FATIGUE SYNDROME
     Dosage: STARTED AT 20 WENT TO 30 MG ONCE DAILY PO; THEN TAPERED TO 1/2 DOSE OF 20 ONCE DAILY PO
     Route: 048
     Dates: start: 20091001, end: 20101208
  2. CYMBALTA [Suspect]
     Indication: DEPRESSION
     Dosage: STARTED AT 20 WENT TO 30 MG ONCE DAILY PO; THEN TAPERED TO 1/2 DOSE OF 20 ONCE DAILY PO
     Route: 048
     Dates: start: 20091001, end: 20101208
  3. CYMBALTA [Suspect]
     Indication: FIBROMYALGIA
     Dosage: STARTED AT 20 WENT TO 30 MG ONCE DAILY PO; THEN TAPERED TO 1/2 DOSE OF 20 ONCE DAILY PO
     Route: 048
     Dates: start: 20091001, end: 20101208

REACTIONS (9)
  - FATIGUE [None]
  - HEADACHE [None]
  - NAUSEA [None]
  - PARAESTHESIA [None]
  - PARAESTHESIA ORAL [None]
  - RENAL PAIN [None]
  - SEXUAL DYSFUNCTION [None]
  - SLEEP DISORDER [None]
  - VERTIGO [None]
